FAERS Safety Report 6269731-5 (Version None)
Quarter: 2009Q3

REPORT INFORMATION
  Report Type: 
  Country: None (occurrence: None)
  Receive Date: 20090716
  Receipt Date: 20090707
  Transmission Date: 20100115
  Serious: Yes (Death, Hospitalization, Other)
  Sender: FDA-Public Use
  Company Number: GB-JNJFOC-20090402053

PATIENT
  Age: 80 Year
  Sex: Male
  Weight: 97 kg

DRUGS (8)
  1. REMICADE [Suspect]
     Indication: RHEUMATOID ARTHRITIS
     Route: 042
  2. METHOTREXATE [Concomitant]
  3. PREDNISONE TAB [Concomitant]
  4. CALCICHEW [Concomitant]
  5. FOLIC ACID [Concomitant]
  6. INDOMETHACIN [Concomitant]
  7. LACTULOSE [Concomitant]
  8. LANSOPRAZOLE [Concomitant]

REACTIONS (11)
  - ATRIAL FIBRILLATION [None]
  - DYSPHAGIA [None]
  - FALL [None]
  - LOWER RESPIRATORY TRACT INFECTION [None]
  - OESOPHAGEAL DISORDER [None]
  - PNEUMONIA [None]
  - PULMONARY FIBROSIS [None]
  - RENAL FAILURE ACUTE [None]
  - RESPIRATORY FAILURE [None]
  - RIB FRACTURE [None]
  - URINARY TRACT INFECTION [None]
